FAERS Safety Report 9964010 (Version 2)
Quarter: 2014Q1

REPORT INFORMATION
  Report Type: Spontaneous
  Country: US (occurrence: US)
  Receive Date: 20140305
  Receipt Date: 20140305
  Transmission Date: 20141002
  Serious: Yes (Hospitalization, Other)
  Sender: FDA-Public Use
  Company Number: US-009507513-0507USA02949

PATIENT
  Sex: Female
  Weight: 65.77 kg

DRUGS (8)
  1. MK-0966 [Suspect]
     Indication: OSTEOARTHRITIS
     Dosage: 50 MG, QD
     Route: 048
     Dates: start: 200102, end: 200409
  2. MK-0966 [Suspect]
     Indication: PAIN IN EXTREMITY
     Dosage: 25 MG, QD
     Route: 048
     Dates: start: 1998, end: 200409
  3. LITHIUM CITRATE [Concomitant]
     Indication: BIPOLAR DISORDER
     Dosage: 900 MG, HS
  4. LEVOTHROID [Concomitant]
     Indication: HYPOTHYROIDISM
     Dosage: 150 ?G, UNK
  5. VALTREX [Concomitant]
     Dosage: 1 G, QD
     Route: 048
  6. TRILEPTAL [Concomitant]
     Dosage: 600  MG, BID
     Route: 048
  7. ACETAMINOPHEN (+) HYDROCODONE BITARTRATE [Concomitant]
     Indication: PAIN
     Dates: start: 20011106, end: 20020318
  8. SYNTHROID [Concomitant]
     Dosage: 0.125 ?G, QD
     Dates: start: 1982

REACTIONS (24)
  - Fibrosarcoma [Unknown]
  - Acute myocardial infarction [Unknown]
  - Gastrooesophageal reflux disease [Unknown]
  - Blood triglycerides increased [Unknown]
  - Type 2 diabetes mellitus [Unknown]
  - Coronary artery disease [Unknown]
  - Vertigo positional [Unknown]
  - Blood thyroid stimulating hormone decreased [Unknown]
  - Blood cholesterol increased [Unknown]
  - Hypertension [Unknown]
  - Dizziness [Unknown]
  - Dizziness [Unknown]
  - Abdominal pain upper [Unknown]
  - Chest pain [Unknown]
  - Musculoskeletal pain [Unknown]
  - Blood alkaline phosphatase increased [Unknown]
  - Vertigo positional [Unknown]
  - Tremor [Unknown]
  - Dizziness [Unknown]
  - Type V hyperlipidaemia [Unknown]
  - Hyperkalaemia [Unknown]
  - Sudden cardiac death [Unknown]
  - Anxiety [Unknown]
  - Angina pectoris [Unknown]
